FAERS Safety Report 18173578 (Version 1)
Quarter: 2020Q3

REPORT INFORMATION
  Report Type: Spontaneous
  Country: CA (occurrence: CA)
  Receive Date: 20200820
  Receipt Date: 20200820
  Transmission Date: 20201103
  Serious: Yes (Death)
  Sender: FDA-Public Use
  Company Number: CA-ACCORD-196154

PATIENT
  Age: 57 Year
  Sex: Female

DRUGS (1)
  1. CARBOPLATIN. [Suspect]
     Active Substance: CARBOPLATIN
     Indication: CHEMOTHERAPY
     Dosage: SOLUTION INTRAVENOUS
     Route: 042

REACTIONS (3)
  - Vomiting [Fatal]
  - Fluid intake reduced [Fatal]
  - Dehydration [Fatal]
